FAERS Safety Report 10712499 (Version 1)
Quarter: 2015Q1

REPORT INFORMATION
  Report Type: Report from Study
  Country: FR (occurrence: FR)
  Receive Date: 20150115
  Receipt Date: 20150115
  Transmission Date: 20150721
  Serious: Yes (Hospitalization)
  Sender: FDA-Public Use
  Company Number: FR-ROCHE-626960

PATIENT
  Age: 68 Year
  Sex: Female

DRUGS (10)
  1. METHOTREXATE [Concomitant]
     Active Substance: METHOTREXATE
     Dosage: 15 MG/WEEK (ONLY FOR THE FIRST INFUSION)
     Route: 065
  2. METHYLPREDNISOLONE. [Concomitant]
     Active Substance: METHYLPREDNISOLONE
     Indication: PREMEDICATION
     Route: 065
  3. CELEBREX [Concomitant]
     Active Substance: CELECOXIB
     Route: 048
  4. RITUXIMAB [Suspect]
     Active Substance: RITUXIMAB
     Indication: RHEUMATOID ARTHRITIS
     Dosage: FREQUENCY: 1 CYCLE, FORM: INFUSION.?D1
     Route: 041
  5. RITUXIMAB [Suspect]
     Active Substance: RITUXIMAB
     Dosage: D15?SECOND INFUSION
     Route: 041
  6. ARAVA [Concomitant]
     Active Substance: LEFLUNOMIDE
     Route: 048
  7. PARACETAMOL [Concomitant]
     Active Substance: ACETAMINOPHEN
     Indication: PREMEDICATION
  8. LEFLUNOMIDE. [Concomitant]
     Active Substance: LEFLUNOMIDE
     Dosage: (ONLY FOR THE FIRST INFUSION) 20 MG/DAY
     Route: 065
  9. CORTANCYL [Concomitant]
     Active Substance: PREDNISONE
     Dosage: 10 MG/DAY
     Route: 065
  10. METHOTREXATE [Concomitant]
     Active Substance: METHOTREXATE
     Route: 065
     Dates: start: 2006

REACTIONS (3)
  - Infusion related reaction [Recovered/Resolved]
  - Chest pain [Recovered/Resolved]
  - Breast cancer [Not Recovered/Not Resolved]

NARRATIVE: CASE EVENT DATE: 20071205
